FAERS Safety Report 8356701-6 (Version None)
Quarter: 2012Q2

REPORT INFORMATION
  Report Type: 
  Country: None (occurrence: None)
  Receive Date: 20120510
  Receipt Date: 20120510
  Transmission Date: 20120825
  Serious: Yes (Other)
  Sender: FDA-Public Use
  Company Number: None

PATIENT
  Age: 78 Year
  Sex: Female
  Weight: 64.4108 kg

DRUGS (1)
  1. LISINOPRIL AND HYDROCHLOROTHIAZIDE [Suspect]
     Indication: HYPERTENSION
     Dosage: 10- 12.5   1 TABLET DAILY MOUTH
     Route: 048
     Dates: start: 20120420, end: 20120424

REACTIONS (8)
  - NERVOUSNESS [None]
  - CRYING [None]
  - HYPOAESTHESIA [None]
  - BLOOD PRESSURE INCREASED [None]
  - HYPERSENSITIVITY [None]
  - PALPITATIONS [None]
  - TREMOR [None]
  - REACTION TO AZO-DYES [None]
